FAERS Safety Report 15427966 (Version 1)
Quarter: 2018Q3

REPORT INFORMATION
  Report Type: Spontaneous
  Country: US (occurrence: US)
  Receive Date: 20180926
  Receipt Date: 20180926
  Transmission Date: 20181010
  Serious: No
  Sender: FDA-Public Use
  Company Number: US-GLENMARK PHARMACEUTICALS-2018GMK036915

PATIENT

DRUGS (1)
  1. IMIQUIMOD. [Suspect]
     Active Substance: IMIQUIMOD
     Indication: PENILE SQUAMOUS CELL CARCINOMA
     Dosage: OD (5 DAYS A WEEK EXCEPT SATURDAY AND SUNDAY)
     Route: 061
     Dates: start: 20180724

REACTIONS (2)
  - Product use in unapproved indication [Unknown]
  - Tumour exudation [Not Recovered/Not Resolved]

NARRATIVE: CASE EVENT DATE: 20180805
